FAERS Safety Report 4880513-9 (Version None)
Quarter: 2005Q4

REPORT INFORMATION
  Report Type: 
  Country: None (occurrence: None)
  Receive Date: 20051223
  Receipt Date: 20051110
  Transmission Date: 20060501
  Serious: No
  Sender: FDA-Public Use
  Company Number: 05P-163-0291660-00

PATIENT
  Age: 52 Year
  Sex: Female
  Weight: 84.369 kg

DRUGS (4)
  1. HUMIRA [Suspect]
     Indication: ARTHRITIS
     Dosage: SEE IMAGE
     Route: 058
     Dates: start: 20041101, end: 20050701
  2. HUMIRA [Suspect]
     Indication: ARTHRITIS
     Dosage: SEE IMAGE
     Route: 058
     Dates: start: 20050701
  3. HYDROCODONE BITARTRATE [Concomitant]
  4. IBUPROFEN [Concomitant]

REACTIONS (8)
  - ARTHRALGIA [None]
  - HOT FLUSH [None]
  - HYPOAESTHESIA [None]
  - INSOMNIA [None]
  - JOINT SWELLING [None]
  - PARAESTHESIA [None]
  - SHOULDER PAIN [None]
  - SINUSITIS [None]
